FAERS Safety Report 4591423-9 (Version None)
Quarter: 2005Q1

REPORT INFORMATION
  Report Type: 
  Country: None (occurrence: None)
  Receive Date: 20050225
  Receipt Date: 20050221
  Transmission Date: 20050727
  Serious: Yes (Death)
  Sender: FDA-Public Use
  Company Number: PHBS2005ES02591

PATIENT
  Age: 0 Day
  Sex: Female

DRUGS (2)
  1. VOLTAREN [Suspect]
     Route: 064
     Dates: start: 20030101
  2. TRYPTIZOL [Suspect]
     Dosage: UNK, UNK
     Route: 064
     Dates: start: 20030101

REACTIONS (3)
  - DRUG EXPOSURE DURING PREGNANCY [None]
  - HEART DISEASE CONGENITAL [None]
  - TWIN PREGNANCY [None]
